FAERS Safety Report 14700892 (Version 1)
Quarter: 2018Q1

REPORT INFORMATION
  Report Type: Spontaneous
  Country: US (occurrence: US)
  Receive Date: 20180328
  Receipt Date: 20180328
  Transmission Date: 20180509
  Serious: Yes (Other)
  Sender: FDA-Public Use
  Company Number: None

PATIENT
  Age: 9 Year
  Sex: Male
  Weight: 24.49 kg

DRUGS (1)
  1. ATOMOXETINE 40MG [Suspect]
     Active Substance: ATOMOXETINE
     Indication: ATTENTION DEFICIT/HYPERACTIVITY DISORDER
     Dosage: 25 MG PREVIOUSLY
     Route: 048

REACTIONS (4)
  - Product substitution issue [None]
  - Anger [None]
  - Vision blurred [None]
  - Aggression [None]

NARRATIVE: CASE EVENT DATE: 20171209
